FAERS Safety Report 7684020-X (Version None)
Quarter: 2011Q3

REPORT INFORMATION
  Report Type: 
  Country: None (occurrence: None)
  Receive Date: 20110815
  Receipt Date: 20110811
  Transmission Date: 20111222
  Serious: Yes (Life-Threatening)
  Sender: FDA-Public Use
  Company Number: IT-B.I. PHARMACEUTICALS,INC./RIDGEFIELD-2011-IT-00206IT

PATIENT
  Sex: Female

DRUGS (5)
  1. MODURETIC 5-50 [Concomitant]
  2. LEVOTHYROXINE SODIUM [Concomitant]
  3. PROCAPTAN [Concomitant]
  4. PRAMIPEXOLE DIHYDROCHLORIDE [Suspect]
     Indication: PARKINSON'S DISEASE
     Dosage: 1 POSOLOGIC UNIT
     Route: 048
     Dates: start: 20101015, end: 20110727
  5. NEBIVOLOL HCL [Concomitant]

REACTIONS (6)
  - VOMITING [None]
  - MUSCLE SPASMS [None]
  - POLYURIA [None]
  - NAUSEA [None]
  - ASTHENIA [None]
  - CONFUSIONAL STATE [None]
